FAERS Safety Report 4415034-0 (Version None)
Quarter: 2004Q3

REPORT INFORMATION
  Report Type: 
  Country: None (occurrence: None)
  Receive Date: 20040729
  Receipt Date: 20040719
  Transmission Date: 20050211
  Serious: Yes (Other)
  Sender: FDA-Public Use
  Company Number: 8496

PATIENT
  Age: 78 Year
  Sex: Male

DRUGS (12)
  1. METHOTREXATE [Suspect]
     Dosage: 10 MG WEEKLY PO
     Route: 048
     Dates: start: 20020624
  2. OXYCONTIN [Suspect]
     Dosage: 10 MG ALT DAYS PO
     Route: 048
     Dates: start: 20021101
  3. VIOXX [Suspect]
     Dosage: 25 MG DAILY PO
     Route: 048
     Dates: start: 20010726
  4. ENBREL [Suspect]
     Indication: RHEUMATOID ARTHRITIS
     Dosage: 25 MG 2/WK, SC
     Route: 058
     Dates: start: 20030501, end: 20030604
  5. PREDNISONE [Concomitant]
  6. TYLENOL W/ CODEINE [Concomitant]
  7. VALIUIM [Concomitant]
  8. KLONOPIN [Concomitant]
  9. ASPIRIN [Concomitant]
  10. ACCUPRIL [Concomitant]
  11. ATENOLOL [Concomitant]
  12. LIPITOR [Concomitant]

REACTIONS (3)
  - ANGIONEUROTIC OEDEMA [None]
  - DIARRHOEA [None]
  - EXPOSURE TO TOXIC AGENT [None]
